FAERS Safety Report 25892625 (Version 3)
Quarter: 2025Q4

REPORT INFORMATION
  Report Type: Report from Study
  Country: CN (occurrence: CN)
  Receive Date: 20251007
  Receipt Date: 20251024
  Transmission Date: 20260118
  Serious: Yes (Hospitalization)
  Sender: SERVIER
  Company Number: CN-SERVIER-S25014329

PATIENT

DRUGS (2)
  1. VORASIDENIB [Suspect]
     Active Substance: VORASIDENIB
     Indication: Glioma
     Dosage: 40 MG
     Route: 048
     Dates: start: 20250810
  2. VORASIDENIB [Suspect]
     Active Substance: VORASIDENIB
     Dosage: 40 MG, QOD
     Route: 048

REACTIONS (2)
  - Hepatic function abnormal [Recovering/Resolving]
  - Product use issue [Recovered/Resolved]

NARRATIVE: CASE EVENT DATE: 20250901
